FAERS Safety Report 9862985 (Version 1)
Quarter: 2014Q1

REPORT INFORMATION
  Report Type: Spontaneous
  Country: US (occurrence: US)
  Receive Date: 20140203
  Receipt Date: 20140203
  Transmission Date: 20141002
  Serious: Yes (Hospitalization)
  Sender: FDA-Public Use
  Company Number: US-ROCHE-1341822

PATIENT
  Age: 65 Year
  Sex: Male

DRUGS (2)
  1. XELODA [Suspect]
     Indication: PRODUCT USED FOR UNKNOWN INDICATION
     Route: 048
     Dates: start: 20131218, end: 20140123
  2. OCTREOTIDE [Concomitant]
     Route: 058
     Dates: start: 20131107

REACTIONS (2)
  - Electrolyte imbalance [Unknown]
  - Haematuria [Unknown]
